FAERS Safety Report 8371193-9 (Version None)
Quarter: 2012Q2

REPORT INFORMATION
  Report Type: 
  Country: None (occurrence: None)
  Receive Date: 20120518
  Receipt Date: 20120514
  Transmission Date: 20120825
  Serious: Yes (Other)
  Sender: FDA-Public Use
  Company Number: PHHY2012US041097

PATIENT
  Age: 76 Year
  Sex: Female

DRUGS (3)
  1. FLUCONAZOLE [Concomitant]
     Indication: CANDIDIASIS
     Route: 048
  2. TOBRAMAXIN [Concomitant]
     Indication: CONJUNCTIVITIS
  3. AZITHROMYCIN [Suspect]
     Indication: OROPHARYNGEAL PAIN

REACTIONS (10)
  - PYREXIA [None]
  - ERYTHEMA [None]
  - ORTHOSTATIC HYPOTENSION [None]
  - DRUG ERUPTION [None]
  - LEUKOCYTOSIS [None]
  - ACUTE GENERALISED EXANTHEMATOUS PUSTULOSIS [None]
  - PRURITUS [None]
  - SKIN PLAQUE [None]
  - RASH PUSTULAR [None]
  - NEUTROPHILIA [None]
